FAERS Safety Report 10979145 (Version 7)
Quarter: 2016Q4

REPORT INFORMATION
  Report Type: Spontaneous
  Country: US (occurrence: US)
  Receive Date: 20150402
  Receipt Date: 20161110
  Transmission Date: 20170206
  Serious: Yes (Other)
  Sender: FDA-Public Use
  Company Number: US-PFIZER INC-2015113483

PATIENT
  Age: 22 Year
  Sex: Male
  Weight: 86 kg

DRUGS (2)
  1. GEODON [Suspect]
     Active Substance: ZIPRASIDONE HYDROCHLORIDE\ZIPRASIDONE MESYLATE
     Dosage: 80 MG, 1X/DAY (AT NIGHT)
     Dates: end: 2007
  2. ZYPREXA [Concomitant]
     Active Substance: OLANZAPINE
     Dosage: UNK

REACTIONS (12)
  - Drug intolerance [Unknown]
  - Hypersensitivity [Recovering/Resolving]
  - Fatigue [Unknown]
  - Facial spasm [Recovering/Resolving]
  - Crying [Unknown]
  - Suicide attempt [Unknown]
  - Muscle disorder [Unknown]
  - Pigmentation disorder [Unknown]
  - Hypertension [Unknown]
  - Sleep disorder [Unknown]
  - Drooling [Unknown]
  - Anorgasmia [Not Recovered/Not Resolved]
